FAERS Safety Report 5636360-3 (Version None)
Quarter: 2008Q1

REPORT INFORMATION
  Report Type: 
  Country: None (occurrence: None)
  Receive Date: 20080225
  Receipt Date: 20080214
  Transmission Date: 20080703
  Serious: Yes (Hospitalization, Other)
  Sender: FDA-Public Use
  Company Number: PHEH2008US01854

PATIENT
  Age: 87 Year
  Sex: Female

DRUGS (2)
  1. GLEEVEC [Suspect]
     Indication: LEUKAEMIA
  2. PERCOCET [Suspect]

REACTIONS (6)
  - FALL [None]
  - HIP FRACTURE [None]
  - HIP SURGERY [None]
  - MALAISE [None]
  - NAUSEA [None]
  - VOMITING [None]
